FAERS Safety Report 13090373 (Version 1)
Quarter: 2017Q1

REPORT INFORMATION
  Report Type: Spontaneous
  Country: US (occurrence: US)
  Receive Date: 20170105
  Receipt Date: 20170105
  Transmission Date: 20170428
  Serious: No
  Sender: FDA-Public Use
  Company Number: US-ENDO PHARMACEUTICALS INC.-2016-002470

PATIENT
  Age: 47 Year
  Sex: Male
  Weight: 88.98 kg

DRUGS (1)
  1. FORTESTA [Suspect]
     Active Substance: TESTOSTERONE
     Indication: TESTICULAR FAILURE
     Route: 061
     Dates: start: 20150414

REACTIONS (5)
  - Drug level fluctuating [Unknown]
  - Blood testosterone increased [Recovered/Resolved]
  - Drug dose omission [Recovered/Resolved]
  - Blood testosterone decreased [Unknown]
  - Off label use [Unknown]

NARRATIVE: CASE EVENT DATE: 2015
